FAERS Safety Report 7320098-0 (Version None)
Quarter: 2011Q1

REPORT INFORMATION
  Report Type: 
  Country: None (occurrence: None)
  Receive Date: 20110228
  Receipt Date: 20110222
  Transmission Date: 20110831
  Serious: Yes (Hospitalization)
  Sender: FDA-Public Use
  Company Number: JP-B.I. PHARMACEUTICALS,INC./RIDGEFIELD-2010-BP-10878NB

PATIENT
  Sex: Male
  Weight: 52 kg

DRUGS (7)
  1. IBUPROFEN [Concomitant]
     Dosage: 2DF
     Route: 048
     Dates: end: 20100805
  2. COBALOKININ [Concomitant]
     Dosage: 2DF
     Route: 048
     Dates: end: 20100805
  3. YOUCOBAL [Concomitant]
     Dosage: 2DF
     Route: 048
     Dates: end: 20100805
  4. COBARENOL [Concomitant]
     Dosage: 2DF
     Route: 048
  5. PURSENNID [Concomitant]
     Dosage: 1DF
     Route: 048
  6. MAGMITT [Concomitant]
     Dosage: 1DF
     Route: 048
  7. MICOMBI COMBINATION [Suspect]
     Indication: HYPERTENSION
     Dosage: 1DF
     Route: 048
     Dates: start: 20100417, end: 20100805

REACTIONS (1)
  - LOSS OF CONSCIOUSNESS [None]
